FAERS Safety Report 6287920-0 (Version None)
Quarter: 2009Q3

REPORT INFORMATION
  Report Type: 
  Country: None (occurrence: None)
  Receive Date: 20090729
  Receipt Date: 20090721
  Transmission Date: 20100115
  Serious: Yes (Other)
  Sender: FDA-Public Use
  Company Number: GB-JNJFOC-20090706926

PATIENT
  Age: 68 Year
  Sex: Female
  Weight: 70 kg

DRUGS (3)
  1. DAKTACORT [Suspect]
     Indication: TINEA PEDIS
     Route: 061
  2. SIMVADOR [Concomitant]
     Indication: BLOOD CHOLESTEROL
     Route: 048
  3. ASPIRIN [Concomitant]
     Route: 048

REACTIONS (6)
  - CONDITION AGGRAVATED [None]
  - HYPERSENSITIVITY [None]
  - INFLAMMATION [None]
  - PRURITUS [None]
  - RASH GENERALISED [None]
  - TINEA PEDIS [None]
